FAERS Safety Report 8277879-9 (Version None)
Quarter: 2012Q2

REPORT INFORMATION
  Report Type: 
  Country: None (occurrence: None)
  Receive Date: 20120412
  Receipt Date: 20120328
  Transmission Date: 20120825
  Serious: Yes (Other)
  Sender: FDA-Public Use
  Company Number: PT-VALEANT-2012VX001545

PATIENT
  Age: 51 Year
  Sex: Female

DRUGS (1)
  1. TIMOLOL MALEATE [Suspect]
     Indication: GLAUCOMA
     Route: 047
     Dates: start: 20120301

REACTIONS (3)
  - EYE INFLAMMATION [None]
  - EYE DISORDER [None]
  - DRY SKIN [None]
